FAERS Safety Report 9227117 (Version 1)
Quarter: 2013Q2

REPORT INFORMATION
  Report Type: Spontaneous
  Country: US (occurrence: None)
  Receive Date: 20130410
  Receipt Date: 20130410
  Transmission Date: 20140414
  Serious: Yes (Death)
  Sender: FDA-Public Use
  Company Number: SYM-2013-02571

PATIENT
  Sex: Female

DRUGS (13)
  1. XENAZINE [Suspect]
     Indication: PRODUCT USED FOR UNKNOWN INDICATION
     Route: 048
  2. MIRAPEX (PRAMIPEXOLE DIHYDROCHLORIDE) (0.5 MILLIGRAM, TABLETS) (PRAMIPEXOLE DIHYDROCHLORIDE) [Concomitant]
  3. KLOR-CON (POTASSIUM CHLORIDE) (TABLETS) (POTASSIUM CHLORIDE) [Concomitant]
  4. SIMVASTATIN (SIMVASTATIN) (20 MILLIGRAM, TABLETS) (SIMVASTATIN) [Concomitant]
  5. PRILOSEC (OMEPRAZOLE) (20 MILLIGRAM, CAPSULE) (OMEPRAZOLE) [Concomitant]
  6. FOSAMAX (ALENDRONATE SODIUM) (70 MILLIGRAM, TABLETS) (ALENDRONATE SODIUM) [Concomitant]
  7. AMLODIPINE (AMLODIPINE) (2.5 MILLIGRAM, TABLETS) (AMLDIPINE) [Concomitant]
  8. FUROSEMIDE (FUROSEMIDE) (20 MILLIGRAM, TABLETS) (FUROSEMIDE) [Concomitant]
  9. DIOVAN (VALSARTAN) (320 MILLIGRAM, TABLETS) (VALSARTAN) [Concomitant]
  10. DILTIAZEM (DILTIAZEM) (240 MILLIGRAM, CAPSULE) (DILTIAZEM) [Concomitant]
  11. AMANTADINE (AMANTADINE) (100 MILLIGRAM, CAPSULE) (AMANTADINE) [Concomitant]
  12. SEROQUEL (QUETIAPINE FUMARATE) (50 MILLIGRAM, TABLETS) (QUETIAPINE FUMARATE) [Concomitant]
  13. ASPIRIN (ACETYLSALICYLIC ACID) (TABLETS) (ACETYLSALICYLICACID) [Concomitant]

REACTIONS (1)
  - Death [None]
